FAERS Safety Report 24926797 (Version 10)
Quarter: 2025Q2

REPORT INFORMATION
  Report Type: Report from Study
  Country: BR (occurrence: BR)
  Receive Date: 20250205
  Receipt Date: 20250627
  Transmission Date: 20250717
  Serious: Yes (Life-Threatening, Other)
  Sender: TAKEDA
  Company Number: BR-TAKEDA-2024TUS102499

PATIENT
  Age: 5 Year
  Sex: Male

DRUGS (7)
  1. HEMO-8R [Suspect]
     Active Substance: ANTIHEMOPHILIC FACTOR, HUMAN RECOMBINANT
     Indication: Factor VIII deficiency
     Dosage: 250 INTERNATIONAL UNIT, 3/WEEK
     Dates: start: 20201001
  2. HEMO-8R [Suspect]
     Active Substance: ANTIHEMOPHILIC FACTOR, HUMAN RECOMBINANT
     Indication: Haemophilia
     Dosage: 250 INTERNATIONAL UNIT, 3/WEEK
     Dates: start: 202010
  3. HEMO-8R [Suspect]
     Active Substance: ANTIHEMOPHILIC FACTOR, HUMAN RECOMBINANT
     Dosage: UNK UNK, 3/WEEK
  4. HEMO-8R [Suspect]
     Active Substance: ANTIHEMOPHILIC FACTOR, HUMAN RECOMBINANT
  5. HEMO-8R [Suspect]
     Active Substance: ANTIHEMOPHILIC FACTOR, HUMAN RECOMBINANT
     Dosage: 250 INTERNATIONAL UNIT, 3/WEEK
  6. HEMO-8R [Suspect]
     Active Substance: ANTIHEMOPHILIC FACTOR, HUMAN RECOMBINANT
  7. HEMO-8R [Suspect]
     Active Substance: ANTIHEMOPHILIC FACTOR, HUMAN RECOMBINANT
     Dosage: 250 INTERNATIONAL UNIT, 3/WEEK

REACTIONS (13)
  - General physical health deterioration [Unknown]
  - Haematoma [Unknown]
  - Autism spectrum disorder [Unknown]
  - Poor venous access [Recovered/Resolved]
  - Injury [Unknown]
  - Somnolence [Unknown]
  - Communication disorder [Unknown]
  - Drug resistance [Unknown]
  - Agitation [Unknown]
  - Limb injury [Unknown]
  - Malaise [Unknown]
  - Vomiting [Unknown]
  - Nausea [Unknown]

NARRATIVE: CASE EVENT DATE: 20250129
